FAERS Safety Report 4497409-7 (Version None)
Quarter: 2004Q4

REPORT INFORMATION
  Report Type: 
  Country: None (occurrence: None)
  Receive Date: 20041104
  Receipt Date: 20041022
  Transmission Date: 20050328
  Serious: Yes (Other)
  Sender: FDA-Public Use
  Company Number: 2004062831

PATIENT
  Sex: Female

DRUGS (6)
  1. NEURONTIN [Suspect]
     Indication: ILL-DEFINED DISORDER
  2. OXYCODONE HYDROCHLORIDE AND ACETAMINOPHEN [Suspect]
     Indication: ILL-DEFINED DISORDER
  3. PAROXETINE HCL [Suspect]
     Indication: ILL-DEFINED DISORDER
  4. ROFECOXIB [Suspect]
     Indication: ILL-DEFINED DISORDER
  5. METHYLPHENIDATE HCL [Suspect]
     Indication: ILL-DEFINED DISORDER
  6. FENTANYL [Suspect]
     Indication: ILL-DEFINED DISORDER

REACTIONS (1)
  - NO ADVERSE DRUG EFFECT [None]
